FAERS Safety Report 4322856-3 (Version None)
Quarter: 2004Q1

REPORT INFORMATION
  Report Type: 
  Country: None (occurrence: None)
  Receive Date: 20040322
  Receipt Date: 20040312
  Transmission Date: 20041129
  Serious: Yes (Life-Threatening)
  Sender: FDA-Public Use
  Company Number: TCI2004A00808

PATIENT
  Age: 59 Year
  Sex: Male

DRUGS (8)
  1. LEUPROLIDE ACETATE [Suspect]
     Indication: PROSTATE CANCER STAGE III
     Dosage: 11.5 MG (11.25 MG, 1 IN 12 WK); SUBCUTANEOUS
     Route: 058
     Dates: start: 20040213
  2. CHLORMADINONE ACETATE TAB [Concomitant]
  3. EVIPROSTAT (TABLETS) [Concomitant]
  4. NAFTOPIDIL (TABLETS) [Concomitant]
  5. SINEMET [Concomitant]
  6. DOMEPERIDONE (TABLETS) [Concomitant]
  7. CABERGOLINE (TABLETS) [Concomitant]
  8. ETHYL LOFLAZEPATE (TABLETS) [Concomitant]

REACTIONS (5)
  - ABASIA [None]
  - ANOREXIA [None]
  - DEPRESSED LEVEL OF CONSCIOUSNESS [None]
  - PARKINSON'S DISEASE [None]
  - RESPIRATORY FAILURE [None]
